FAERS Safety Report 12753200 (Version 1)
Quarter: 2016Q3

REPORT INFORMATION
  Report Type: Spontaneous
  Country: IT (occurrence: IT)
  Receive Date: 20160916
  Receipt Date: 20160916
  Transmission Date: 20161109
  Serious: Yes (Disabling)
  Sender: FDA-Public Use
  Company Number: IT-TEVA-691880ACC

PATIENT
  Age: 68 Year
  Sex: Male

DRUGS (4)
  1. PREDNISONE. [Suspect]
     Active Substance: PREDNISONE
     Indication: SALIVARY GLAND CANCER
     Dosage: 10 MILLIGRAM DAILY;
  2. TRIPTORELIN [Suspect]
     Active Substance: TRIPTORELIN
     Indication: SALIVARY GLAND CANCER
  3. ABIRATERONE ACETATO [Suspect]
     Active Substance: ABIRATERONE ACETATE
     Indication: SALIVARY GLAND CANCER
     Dosage: 1000 MILLIGRAM DAILY;
  4. BICALUTAMIDE. [Suspect]
     Active Substance: BICALUTAMIDE
     Indication: SALIVARY GLAND NEOPLASM
     Dosage: 150 MILLIGRAM DAILY;
     Route: 065

REACTIONS (6)
  - Abasia [Recovered/Resolved]
  - Walking disability [Recovered/Resolved]
  - Off label use [Unknown]
  - Bone pain [Recovered/Resolved]
  - Spinal pain [Recovered/Resolved]
  - Dysstasia [Recovered/Resolved]
